FAERS Safety Report 16712436 (Version 1)
Quarter: 2019Q3

REPORT INFORMATION
  Report Type: Spontaneous
  Country: DE (occurrence: DE)
  Receive Date: 20190816
  Receipt Date: 20190816
  Transmission Date: 20191004
  Serious: Yes (Other)
  Sender: FDA-Public Use
  Company Number: DE-BAUSCH-BL-2019-022382

PATIENT
  Sex: Male

DRUGS (5)
  1. FLOXAL [Suspect]
     Active Substance: OFLOXACIN
     Indication: POSTOPERATIVE CARE
     Route: 065
     Dates: start: 201907, end: 201908
  2. HYLO COMOD [Suspect]
     Active Substance: HYALURONATE SODIUM
     Indication: POSTOPERATIVE CARE
     Route: 065
     Dates: start: 201907
  3. XALATAN [Interacting]
     Active Substance: LATANOPROST
     Indication: INTRAOCULAR PRESSURE INCREASED
     Route: 065
     Dates: start: 201907
  4. EVOTEARS [Suspect]
     Active Substance: PERFLUOROHEXYLOCTANE
     Indication: PRODUCT USED FOR UNKNOWN INDICATION
     Route: 065
     Dates: start: 2019
  5. DEXA SINE [Suspect]
     Active Substance: DEXAMETHASONE SODIUM PHOSPHATE
     Indication: POSTOPERATIVE CARE
     Route: 065
     Dates: start: 201907

REACTIONS (10)
  - Intraocular pressure increased [Recovering/Resolving]
  - Drug intolerance [Unknown]
  - Eye irritation [Not Recovered/Not Resolved]
  - Cardiovascular disorder [Recovered/Resolved]
  - Drug interaction [Unknown]
  - Hypertension [Recovered/Resolved]
  - Chest discomfort [Recovered/Resolved]
  - Foreign body sensation in eyes [Not Recovered/Not Resolved]
  - Sinus pain [Not Recovered/Not Resolved]
  - Vitreous floaters [Recovered/Resolved]

NARRATIVE: CASE EVENT DATE: 2019
